FAERS Safety Report 11664971 (Version 1)
Quarter: 2015Q4

REPORT INFORMATION
  Report Type: Spontaneous
  Country: US (occurrence: US)
  Receive Date: 20151027
  Receipt Date: 20151027
  Transmission Date: 20160304
  Serious: No
  Sender: FDA-Public Use
  Company Number: US-ELI_LILLY_AND_COMPANY-US200912002173

PATIENT
  Age: 56 Year
  Sex: Female

DRUGS (2)
  1. FORTEO [Suspect]
     Active Substance: TERIPARATIDE
     Indication: BONE DISORDER
  2. FORTEO [Suspect]
     Active Substance: TERIPARATIDE
     Dosage: UNK, UNK
     Dates: start: 200912

REACTIONS (9)
  - Drug interaction [Unknown]
  - Skin odour abnormal [Unknown]
  - Throat tightness [Recovered/Resolved]
  - Burning sensation [Unknown]
  - Dysphagia [Unknown]
  - Throat tightness [Unknown]
  - Burning sensation [Recovered/Resolved]
  - Paranoia [Unknown]
  - Malaise [Unknown]

NARRATIVE: CASE EVENT DATE: 200812
